FAERS Safety Report 16040122 (Version 1)
Quarter: 2019Q2

REPORT INFORMATION
  Report Type: Spontaneous
  Country: US (occurrence: US)
  Receive Date: 20190305
  Receipt Date: 20190305
  Transmission Date: 20190711
  Serious: No
  Sender: FDA-Public Use
  Company Number: None

PATIENT
  Age: 41 Year
  Sex: Female
  Weight: 69.3 kg

DRUGS (6)
  1. CLARITIN [Concomitant]
     Active Substance: LORATADINE
  2. WELLBUTRIN [Concomitant]
     Active Substance: BUPROPION HYDROCHLORIDE
  3. LO ESTRAN [Concomitant]
  4. LIPITOR [Concomitant]
     Active Substance: ATORVASTATIN CALCIUM
  5. CHLORAPREP [Suspect]
     Active Substance: CHLORHEXIDINE GLUCONATE\ISOPROPYL ALCOHOL
     Indication: PREOPERATIVE CARE
     Route: 061
     Dates: start: 20190218, end: 20190218
  6. OMNEPRAZOLE [Concomitant]

REACTIONS (4)
  - Feeling hot [None]
  - Application site rash [None]
  - Drug hypersensitivity [None]
  - Rash pruritic [None]

NARRATIVE: CASE EVENT DATE: 20190219
